FAERS Safety Report 8984881 (Version 1)
Quarter: 2012Q4

REPORT INFORMATION
  Report Type: 
  Country: US (occurrence: US)
  Receive Date: 20121226
  Receipt Date: 20121226
  Transmission Date: 20130627
  Serious: Yes (Other)
  Sender: FDA-Public Use
  Company Number: US-BAYER-2012-105678

PATIENT
  Sex: Male
  Weight: 86.2 kg

DRUGS (7)
  1. REGORAFENIB [Suspect]
     Indication: METASTATIC COLORECTAL CANCER
     Dosage: 160 mg, QD
     Route: 048
     Dates: start: 20120925
  2. OXYCODONE [Concomitant]
     Indication: CANCER PAIN
     Dosage: 20 mg, UNK
     Route: 048
     Dates: start: 20120925
  3. ZOLPIDEM [Concomitant]
     Indication: INSOMNIA
     Dosage: 5 mg, UNK
     Route: 048
     Dates: start: 20120810
  4. LORAZEPAM [Concomitant]
     Indication: ANXIETY
     Dosage: 5 mg, UNK
     Route: 048
     Dates: start: 20120622
  5. PROCHLORPERAZINE [Concomitant]
     Indication: ANTIEMETIC SUPPORTIVE CARE
     Dosage: 40 mg, UNK
     Route: 048
     Dates: start: 20120717
  6. MULTIVITAMIN [Concomitant]
     Indication: NUTRITIONAL SUPPLEMENT
     Dosage: 1 tablet
     Route: 048
  7. ONDANSETRON [Concomitant]
     Indication: ANTIEMETIC SUPPORTIVE CARE
     Dosage: 24 mg, UNK
     Route: 048
     Dates: start: 20120710

REACTIONS (1)
  - Dysaesthesia [Recovered/Resolved]
